FAERS Safety Report 17312456 (Version 1)
Quarter: 2020Q1

REPORT INFORMATION
  Report Type: Spontaneous
  Country: US (occurrence: US)
  Receive Date: 20200123
  Receipt Date: 20200123
  Transmission Date: 20200409
  Serious: No
  Sender: FDA-Public Use
  Company Number: US-NOVOPROD-675004

PATIENT
  Age: 63 Year
  Sex: Female

DRUGS (1)
  1. OZEMPIC [Suspect]
     Active Substance: SEMAGLUTIDE
     Indication: TYPE 2 DIABETES MELLITUS
     Dosage: 1 MG, QW
     Route: 058

REACTIONS (5)
  - Device malfunction [Unknown]
  - Injection site swelling [Recovered/Resolved]
  - Product dispensing error [Unknown]
  - Blood pressure increased [Unknown]
  - Device leakage [Unknown]

NARRATIVE: CASE EVENT DATE: 201907
